FAERS Safety Report 6688399-7 (Version None)
Quarter: 2010Q2

REPORT INFORMATION
  Report Type: 
  Country: None (occurrence: None)
  Receive Date: 20100420
  Receipt Date: 20100414
  Transmission Date: 20101027
  Serious: Yes (Hospitalization)
  Sender: FDA-Public Use
  Company Number: DE-ROCHE-698138

PATIENT
  Sex: Female
  Weight: 89 kg

DRUGS (2)
  1. TRASTUZUMAB [Suspect]
     Route: 042
     Dates: start: 20100312
  2. TAMOXIFEN CITRATE [Suspect]
     Route: 048
     Dates: start: 20100312

REACTIONS (1)
  - JUGULAR VEIN THROMBOSIS [None]
